FAERS Safety Report 10440813 (Version 6)
Quarter: 2015Q2

REPORT INFORMATION
  Report Type: Report from Study
  Country: US (occurrence: US)
  Receive Date: 20140909
  Receipt Date: 20150406
  Transmission Date: 20150821
  Serious: Yes (Other)
  Sender: FDA-Public Use
  Company Number: US-AMGEN INC.-USASP2014067588

PATIENT
  Age: 54 Year
  Sex: Female
  Weight: 108.8 kg

DRUGS (2)
  1. ENBREL [Suspect]
     Active Substance: ETANERCEPT
     Indication: PSORIATIC ARTHROPATHY
     Dosage: 50 MG, QWK
     Route: 058
     Dates: start: 20140528
  2. METHOTREXATE [Concomitant]
     Active Substance: METHOTREXATE
     Dosage: 17.5 MG, QWK
     Route: 048
     Dates: end: 20141029

REACTIONS (20)
  - Injection site reaction [Recovered/Resolved]
  - Pyrexia [Recovered/Resolved]
  - Gastroenteritis viral [Recovered/Resolved]
  - Hypersensitivity [Unknown]
  - Bronchitis [Unknown]
  - Nausea [Not Recovered/Not Resolved]
  - Tooth fracture [Not Recovered/Not Resolved]
  - Tooth extraction [Recovered/Resolved]
  - Cough [Unknown]
  - Fatigue [Not Recovered/Not Resolved]
  - Sciatica [Unknown]
  - Arthralgia [Not Recovered/Not Resolved]
  - Pneumonia [Recovered/Resolved]
  - Diarrhoea [Recovered/Resolved]
  - Injection site discolouration [Not Recovered/Not Resolved]
  - Melanocytic naevus [Recovered/Resolved]
  - Dental caries [Not Recovered/Not Resolved]
  - Upper respiratory tract infection [Recovered/Resolved]
  - Injection site haemorrhage [Unknown]
  - Device failure [Recovered/Resolved]

NARRATIVE: CASE EVENT DATE: 2014
